FAERS Safety Report 5719019-3 (Version None)
Quarter: 2008Q2

REPORT INFORMATION
  Report Type: 
  Country: None (occurrence: None)
  Receive Date: 20080425
  Receipt Date: 20080418
  Transmission Date: 20081010
  Serious: Yes (Hospitalization)
  Sender: FDA-Public Use
  Company Number: PHHO2007BR11948

PATIENT
  Age: 58 Year
  Sex: Male

DRUGS (4)
  1. PREDNISONE [Concomitant]
  2. VALTREX [Concomitant]
  3. CELLCEPT [Concomitant]
  4. CYCLOSPORINE [Suspect]
     Indication: RENAL TRANSPLANT
     Route: 048

REACTIONS (8)
  - ATELECTASIS [None]
  - ESCHERICHIA INFECTION [None]
  - KIDNEY ENLARGEMENT [None]
  - OEDEMA PERIPHERAL [None]
  - PYELONEPHRITIS [None]
  - PYREXIA [None]
  - RENAL CYST [None]
  - RENAL IMPAIRMENT [None]
